FAERS Safety Report 18531946 (Version 4)
Quarter: 2021Q1

REPORT INFORMATION
  Report Type: Spontaneous
  Country: US (occurrence: US)
  Receive Date: 20201123
  Receipt Date: 20210209
  Transmission Date: 20210419
  Serious: No
  Sender: FDA-Public Use
  Company Number: US-GLAXOSMITHKLINE-US2020AMR229166

PATIENT
  Sex: Female

DRUGS (3)
  1. ZEJULA [Suspect]
     Active Substance: NIRAPARIB
     Dosage: 100 MG, QD
     Route: 048
  2. ZEJULA [Suspect]
     Active Substance: NIRAPARIB
     Dosage: 100 MG, QD
     Route: 048
  3. ZEJULA [Suspect]
     Active Substance: NIRAPARIB
     Indication: OVARIAN CANCER
     Dosage: 200 MG, QD
     Route: 048
     Dates: start: 20201111

REACTIONS (13)
  - Neutrophil count increased [Unknown]
  - Product dose omission issue [Unknown]
  - Back pain [Unknown]
  - Cognitive disorder [Unknown]
  - Headache [Unknown]
  - White blood cell count decreased [Unknown]
  - Decreased appetite [Unknown]
  - Dizziness postural [Unknown]
  - Nasal congestion [Unknown]
  - Blood pressure increased [Unknown]
  - Asthenia [Recovering/Resolving]
  - Neutrophil count decreased [Recovering/Resolving]
  - Fatigue [Unknown]
